FAERS Safety Report 9672283 (Version 2)
Quarter: 2013Q4

REPORT INFORMATION
  Report Type: Spontaneous
  Country: US (occurrence: US)
  Receive Date: 20131106
  Receipt Date: 20131106
  Transmission Date: 20140711
  Serious: Yes (Hospitalization, Other)
  Sender: FDA-Public Use
  Company Number: US-BAXTER-2011BH025536

PATIENT
  Sex: Female
  Weight: 63.64 kg

DRUGS (12)
  1. GAMMAGARD S/D [Suspect]
     Indication: IMMUNODEFICIENCY COMMON VARIABLE
     Route: 042
     Dates: start: 20041222
  2. GAMMAGARD S/D [Suspect]
     Route: 042
     Dates: start: 20050524
  3. GAMMAGARD S/D [Suspect]
     Route: 042
     Dates: start: 20050606
  4. GAMMAGARD S/D [Suspect]
     Route: 042
     Dates: start: 20050706
  5. GAMMAGARD S/D [Suspect]
     Route: 042
     Dates: start: 20050727
  6. GAMMAGARD S/D [Suspect]
     Route: 042
     Dates: start: 20050817, end: 20050817
  7. LEVOTHYROXINE [Concomitant]
     Indication: HYPOTHYROIDISM
     Route: 048
  8. AMLODIPINE [Concomitant]
     Indication: HYPERTENSION
     Route: 048
  9. KLONOPIN [Concomitant]
     Indication: PRODUCT USED FOR UNKNOWN INDICATION
     Route: 048
  10. COMPAZINE [Concomitant]
     Indication: NAUSEA
     Route: 048
  11. MECLIZINE [Concomitant]
     Indication: DIZZINESS
     Route: 048
  12. CARIMUNE [Concomitant]
     Indication: IMMUNODEFICIENCY COMMON VARIABLE
     Route: 065
     Dates: start: 20040707

REACTIONS (6)
  - Renal failure [Recovered/Resolved]
  - Loss of consciousness [Recovered/Resolved]
  - Electrolyte imbalance [Recovered/Resolved]
  - Depression [Recovered/Resolved]
  - Hypophagia [Recovered/Resolved]
  - Blood sodium decreased [Recovered/Resolved]
